FAERS Safety Report 19994041 (Version 2)
Quarter: 2024Q4

REPORT INFORMATION
  Report Type: Spontaneous
  Country: US (occurrence: US)
  Receive Date: 20211026
  Receipt Date: 20241110
  Transmission Date: 20250115
  Serious: No
  Sender: SANOFI AVENTIS
  Company Number: US-SA-SAC20211019000236

PATIENT
  Age: 17 Year
  Sex: Female
  Weight: 84.3 kg

DRUGS (1)
  1. DUPIXENT [Suspect]
     Active Substance: DUPILUMAB
     Indication: Dermatitis atopic
     Dosage: 300 MG, QOW
     Route: 058
     Dates: start: 202110

REACTIONS (2)
  - Migraine [Unknown]
  - Erythema of eyelid [Unknown]

NARRATIVE: CASE EVENT DATE: 20211001
